FAERS Safety Report 9495411 (Version 2)
Quarter: 2013Q3

REPORT INFORMATION
  Report Type: Spontaneous
  Country: US (occurrence: US)
  Receive Date: 20130903
  Receipt Date: 20130903
  Transmission Date: 20140515
  Serious: Yes (Other)
  Sender: FDA-Public Use
  Company Number: PHEH2013US012782

PATIENT
  Age: 36 Year
  Sex: Female

DRUGS (1)
  1. GILENYA [Suspect]
     Route: 048

REACTIONS (9)
  - Basedow^s disease [Unknown]
  - Temperature intolerance [Unknown]
  - Balance disorder [Unknown]
  - Gait disturbance [Unknown]
  - Nausea [Unknown]
  - Fatigue [Unknown]
  - Nasopharyngitis [Unknown]
  - Influenza [Unknown]
  - Dizziness [Unknown]
